FAERS Safety Report 22777122 (Version 2)
Quarter: 2023Q4

REPORT INFORMATION
  Report Type: Spontaneous
  Country: GR (occurrence: GR)
  Receive Date: 20230802
  Receipt Date: 20231004
  Transmission Date: 20240109
  Serious: Yes (Hospitalization, Other)
  Sender: FDA-Public Use
  Company Number: GR-BoehringerIngelheim-2023-BI-252760

PATIENT
  Age: 72 Year
  Sex: Male

DRUGS (1)
  1. DABIGATRAN [Suspect]
     Active Substance: DABIGATRAN
     Indication: Atrial fibrillation

REACTIONS (4)
  - Drug ineffective [Unknown]
  - Ischaemic stroke [Recovered/Resolved with Sequelae]
  - Non-small cell lung cancer [Unknown]
  - Atrial thrombosis [Unknown]
